FAERS Safety Report 6042118-6 (Version None)
Quarter: 2009Q1

REPORT INFORMATION
  Report Type: 
  Country: None (occurrence: None)
  Receive Date: 20090116
  Receipt Date: 20090114
  Transmission Date: 20090719
  Serious: Yes (Death)
  Sender: FDA-Public Use
  Company Number: PHHY2009BR01453

PATIENT
  Age: 87 Year
  Sex: Male

DRUGS (1)
  1. EXELON [Suspect]
     Dosage: 9MG/5CM2
     Route: 062

REACTIONS (1)
  - DEATH [None]
